FAERS Safety Report 5401722-6 (Version None)
Quarter: 2007Q3

REPORT INFORMATION
  Report Type: 
  Country: None (occurrence: None)
  Receive Date: 20070731
  Receipt Date: 20070717
  Transmission Date: 20080115
  Serious: Yes (Hospitalization)
  Sender: FDA-Public Use
  Company Number: US-ELI_LILLY_AND_COMPANY-US200707004815

PATIENT
  Age: 80 Year
  Sex: Female

DRUGS (12)
  1. FORTEO [Suspect]
     Dosage: 20 UG, UNK
     Dates: start: 20070712, end: 20070712
  2. VYTORIN [Concomitant]
     Indication: HYPERTENSION
     Dosage: 1020 UNK, UNK
     Route: 048
  3. ALTACE [Concomitant]
     Dosage: 5 MG, UNK
     Route: 048
  4. ZOLOFT [Concomitant]
  5. LASIX [Concomitant]
  6. ZYRTEC [Concomitant]
  7. NEXIUM [Concomitant]
  8. LEXAPRO [Concomitant]
  9. WARFARIN SODIUM [Concomitant]
  10. COLACE [Concomitant]
  11. FLONASE [Concomitant]
  12. PERCOCET [Concomitant]
     Dosage: UNK, AS NEEDED

REACTIONS (2)
  - HEART RATE ABNORMAL [None]
  - PALPITATIONS [None]
